FAERS Safety Report 5968842-9 (Version None)
Quarter: 2008Q4

REPORT INFORMATION
  Report Type: 
  Country: None (occurrence: None)
  Receive Date: 20081119
  Receipt Date: 20081013
  Transmission Date: 20090506
  Serious: No
  Sender: FDA-Public Use
  Company Number: WAES 0810USA02424

PATIENT
  Age: 39 Year
  Sex: Female

DRUGS (3)
  1. JANUVIA [Suspect]
     Indication: BLOOD GLUCOSE
     Dosage: 100 MG/DAILY/PO
     Route: 048
     Dates: start: 20081009
  2. OXYCODONE HCL [Concomitant]
  3. UBIDECARENONE [Concomitant]

REACTIONS (1)
  - DRUG INEFFECTIVE [None]
